FAERS Safety Report 4988647-5 (Version None)
Quarter: 2006Q2

REPORT INFORMATION
  Report Type: 
  Country: None (occurrence: None)
  Receive Date: 20060426
  Receipt Date: 20060411
  Transmission Date: 20061013
  Serious: Yes (Hospitalization)
  Sender: FDA-Public Use
  Company Number: DE200604001912

PATIENT
  Sex: Female

DRUGS (2)
  1. CYMBALTA [Suspect]
  2. DICLOFENAC POTASSIUM [Concomitant]

REACTIONS (1)
  - PANCREATIC NECROSIS [None]
